FAERS Safety Report 21747633 (Version 3)
Quarter: 2023Q1

REPORT INFORMATION
  Report Type: Spontaneous
  Country: ES (occurrence: ES)
  Receive Date: 20221219
  Receipt Date: 20230206
  Transmission Date: 20230418
  Serious: Yes (Other)
  Sender: FDA-Public Use
  Company Number: ES-ALIMERA SCIENCES LIMITED-ES-A16013-22-000333

PATIENT
  Sex: Female

DRUGS (1)
  1. ILUVIEN [Suspect]
     Active Substance: FLUOCINOLONE ACETONIDE
     Indication: Cystoid macular oedema
     Dosage: 0.25 MICROGRAM, QD - UNKNOWN EYE
     Route: 031
     Dates: start: 202206

REACTIONS (9)
  - Iris injury [Unknown]
  - Blindness [Unknown]
  - Device dislocation [Unknown]
  - Injury corneal [Unknown]
  - Laser therapy [Recovered/Resolved]
  - Medical device removal [Recovered/Resolved]
  - Intraocular pressure increased [Unknown]
  - Corneal oedema [Unknown]
  - Off label use [Unknown]

NARRATIVE: CASE EVENT DATE: 20220601
